FAERS Safety Report 13441378 (Version 1)
Quarter: 2017Q2

REPORT INFORMATION
  Report Type: Spontaneous
  Country: US (occurrence: US)
  Receive Date: 20170413
  Receipt Date: 20170413
  Transmission Date: 20170830
  Serious: No
  Sender: FDA-Public Use
  Company Number: US-AUROBINDO-AUR-APU-2017-25653

PATIENT
  Sex: Female

DRUGS (1)
  1. FAMOTIDINE TABLETS 40MG [Suspect]
     Active Substance: FAMOTIDINE
     Indication: GASTROOESOPHAGEAL REFLUX DISEASE
     Dosage: ONE TABLET A DAY
     Dates: start: 20161121

REACTIONS (2)
  - Chest pain [Unknown]
  - Drug ineffective [Unknown]
